FAERS Safety Report 7703503-7 (Version None)
Quarter: 2011Q3

REPORT INFORMATION
  Report Type: 
  Country: None (occurrence: None)
  Receive Date: 20110823
  Receipt Date: 20110809
  Transmission Date: 20111222
  Serious: Yes (Other)
  Sender: FDA-Public Use
  Company Number: US-ELI_LILLY_AND_COMPANY-US201108001576

PATIENT
  Age: 68 Year
  Sex: Female

DRUGS (1)
  1. FORTEO [Suspect]
     Indication: OSTEOPOROSIS
     Dosage: UNK, UNK
     Dates: start: 20110401

REACTIONS (5)
  - HEPATOTOXICITY [None]
  - LYMPHADENOPATHY [None]
  - MALAISE [None]
  - DRUG INEFFECTIVE [None]
  - LIVER DISORDER [None]
